FAERS Safety Report 5858310-7 (Version None)
Quarter: 2008Q3

REPORT INFORMATION
  Report Type: 
  Country: None (occurrence: None)
  Receive Date: 20080826
  Receipt Date: 20080819
  Transmission Date: 20090109
  Serious: Yes (Hospitalization)
  Sender: FDA-Public Use
  Company Number: B0533682A

PATIENT
  Age: 51 Year
  Sex: Male

DRUGS (8)
  1. ZIAGEN [Suspect]
     Indication: HIV INFECTION
     Route: 048
     Dates: start: 20011101, end: 20060916
  2. EPIVIR [Suspect]
     Indication: ACQUIRED IMMUNODEFICIENCY SYNDROME
     Route: 048
     Dates: start: 20031201, end: 20060401
  3. KALETRA [Suspect]
     Indication: ACQUIRED IMMUNODEFICIENCY SYNDROME
     Route: 048
     Dates: start: 20011101, end: 20050401
  4. VIREAD [Suspect]
     Indication: ACQUIRED IMMUNODEFICIENCY SYNDROME
     Route: 048
     Dates: start: 20011101, end: 20060401
  5. TELZIR [Concomitant]
     Indication: ACQUIRED IMMUNODEFICIENCY SYNDROME
     Route: 065
     Dates: start: 20050401
  6. NORVIR [Concomitant]
     Indication: ACQUIRED IMMUNODEFICIENCY SYNDROME
     Route: 065
     Dates: start: 20050401
  7. ESIDRIX [Concomitant]
     Route: 065
     Dates: start: 20060701
  8. TRUVADA [Concomitant]
     Indication: ACQUIRED IMMUNODEFICIENCY SYNDROME
     Dates: start: 20060401

REACTIONS (12)
  - ABDOMINAL PAIN [None]
  - ARTERIAL STENOSIS LIMB [None]
  - ARTERITIS [None]
  - COELIAC ARTERY STENOSIS [None]
  - COLONIC OBSTRUCTION [None]
  - GASTRIC STENOSIS [None]
  - HYPERTENSION [None]
  - ILIAC ARTERY STENOSIS [None]
  - INTERMITTENT CLAUDICATION [None]
  - INTESTINAL ISCHAEMIA [None]
  - MESENTERIC ARTERY STENOSIS [None]
  - PULSE ABSENT [None]
